FAERS Safety Report 11277763 (Version 2)
Quarter: 2015Q4

REPORT INFORMATION
  Report Type: Spontaneous
  Country: US (occurrence: US)
  Receive Date: 20150716
  Receipt Date: 20151028
  Transmission Date: 20160304
  Serious: Yes (Hospitalization, Other)
  Sender: FDA-Public Use
  Company Number: US-DSJP-DSU-2015-115385

PATIENT

DRUGS (5)
  1. BENICAR [Suspect]
     Active Substance: OLMESARTAN MEDOXOMIL
     Dosage: UNK
  2. BENICAR HCT [Suspect]
     Active Substance: HYDROCHLOROTHIAZIDE\OLMESARTAN MEDOXOMIL
     Dosage: 40/12.5, UNK
     Dates: start: 201204, end: 201405
  3. BENICAR HCT [Suspect]
     Active Substance: HYDROCHLOROTHIAZIDE\OLMESARTAN MEDOXOMIL
     Indication: HYPERTENSION
     Dosage: 20/12.5, UNK
     Dates: start: 200409, end: 2008
  4. BENICAR [Suspect]
     Active Substance: OLMESARTAN MEDOXOMIL
     Indication: HYPERTENSION
     Dosage: 20 MG, QD
     Dates: start: 20030908, end: 20080116
  5. PREMARIN [Concomitant]
     Active Substance: ESTROGENS, CONJUGATED
     Indication: PRODUCT USED FOR UNKNOWN INDICATION
     Dosage: 1.25 MG, QD
     Dates: start: 20020928

REACTIONS (21)
  - Irritable bowel syndrome [Unknown]
  - Liver function test abnormal [Unknown]
  - Allergic gastroenteritis [Unknown]
  - Dysphagia [Unknown]
  - Tongue ulceration [Unknown]
  - Acute kidney injury [Unknown]
  - Pancreatitis acute [Unknown]
  - Cholecystectomy [Unknown]
  - Dyspepsia [Unknown]
  - Gastrooesophageal reflux disease [Unknown]
  - Constipation [Unknown]
  - Renal cyst [Unknown]
  - Decreased appetite [Unknown]
  - Malabsorption [Recovered/Resolved]
  - Large intestine polyp [Unknown]
  - Chronic hepatitis [Unknown]
  - Coeliac disease [Unknown]
  - Gastroenteritis viral [Unknown]
  - Biliary dyskinesia [Unknown]
  - Abdominal distension [Unknown]
  - Chronic hepatitis [Unknown]

NARRATIVE: CASE EVENT DATE: 2003
